FAERS Safety Report 8988977 (Version 1)
Quarter: 2012Q4

REPORT INFORMATION
  Report Type: Spontaneous
  Country: US (occurrence: None)
  Receive Date: 20121224
  Receipt Date: 20121224
  Transmission Date: 20130627
  Serious: Yes (Hospitalization)
  Sender: FDA-Public Use
  Company Number: None

PATIENT
  Sex: Female
  Weight: 14.9 kg

DRUGS (8)
  1. CYCLOPHOSPHAMIDE [Suspect]
  2. CYTARABINE [Suspect]
  3. DEXAMETHASONE [Suspect]
  4. DOXORUBICIN HYDROCHLORIDE [Suspect]
  5. METHOTREXATE [Suspect]
  6. PEG-L-ASPARAGINASE [Suspect]
  7. THIOGUANINE [Suspect]
  8. VINCRISTINE SULFATE [Suspect]

REACTIONS (1)
  - Acute myeloid leukaemia [None]
